FAERS Safety Report 9395525 (Version 1)
Quarter: 2013Q3

REPORT INFORMATION
  Report Type: Spontaneous
  Country: JP (occurrence: JP)
  Receive Date: 20130711
  Receipt Date: 20130711
  Transmission Date: 20140515
  Serious: Yes (Other)
  Sender: FDA-Public Use
  Company Number: JP-ASTELLAS-2013JP007393

PATIENT
  Age: 45 Year
  Sex: Male

DRUGS (6)
  1. TACROLIMUS [Suspect]
     Indication: DERMATOMYOSITIS
     Route: 065
  2. TACROLIMUS [Suspect]
     Indication: INTERSTITIAL LUNG DISEASE
  3. CORTICOSTEROID NOS [Concomitant]
     Indication: DERMATOMYOSITIS
     Route: 065
  4. CORTICOSTEROID NOS [Concomitant]
     Indication: INTERSTITIAL LUNG DISEASE
     Dosage: 1 MG/KG, UNKNOWN/D
     Route: 065
  5. CYCLOPHOSPHAMIDE [Concomitant]
     Indication: DERMATOMYOSITIS
     Route: 042
  6. CYCLOPHOSPHAMIDE [Concomitant]
     Indication: INTERSTITIAL LUNG DISEASE

REACTIONS (3)
  - Drug ineffective [Unknown]
  - Dermatomyositis [Unknown]
  - Interstitial lung disease [Unknown]
